FAERS Safety Report 12578329 (Version 1)
Quarter: 2016Q3

REPORT INFORMATION
  Report Type: Spontaneous
  Country: US (occurrence: None)
  Receive Date: 20160720
  Receipt Date: 20160720
  Transmission Date: 20161109
  Serious: No
  Sender: FDA-Public Use
  Company Number: None

PATIENT
  Age: 83 Year
  Sex: Male
  Weight: 93.9 kg

DRUGS (1)
  1. ELITE WHITE [Suspect]
     Active Substance: CARBAMIDE PEROXIDE
     Indication: DENTAL CARE
     Dates: start: 20160405

REACTIONS (1)
  - Oral discomfort [None]

NARRATIVE: CASE EVENT DATE: 20160411
